FAERS Safety Report 6298939-8 (Version None)
Quarter: 2009Q3

REPORT INFORMATION
  Report Type: 
  Country: None (occurrence: None)
  Receive Date: 20090806
  Receipt Date: 20090729
  Transmission Date: 20100115
  Serious: Yes (Hospitalization)
  Sender: FDA-Public Use
  Company Number: FR-JNJFOC-20090709683

PATIENT
  Sex: Female

DRUGS (5)
  1. IMODIUM [Suspect]
     Route: 048
  2. IMODIUM [Suspect]
     Indication: DIARRHOEA
     Route: 048
  3. APROVEL [Concomitant]
     Indication: HYPERTENSION
     Route: 065
  4. SOTALEX [Concomitant]
     Indication: HYPERTENSION
     Route: 065
  5. STAGID [Concomitant]
     Indication: DIABETES MELLITUS
     Route: 048

REACTIONS (2)
  - FAECALITH [None]
  - URINARY RETENTION [None]
